FAERS Safety Report 24199047 (Version 2)
Quarter: 2025Q1

REPORT INFORMATION
  Report Type: Report from Study
  Country: US (occurrence: US)
  Receive Date: 20240812
  Receipt Date: 20250124
  Transmission Date: 20250409
  Serious: Yes (Other)
  Sender: ABBVIE
  Company Number: US-ABBVIE-5870934

PATIENT
  Age: 71 Year
  Sex: Female

DRUGS (1)
  1. RINVOQ [Suspect]
     Active Substance: UPADACITINIB
     Indication: Rheumatoid arthritis
     Route: 048
     Dates: start: 20160501

REACTIONS (12)
  - Femur fracture [Recovering/Resolving]
  - Pain [Recovering/Resolving]
  - Pneumonia bacterial [Recovering/Resolving]
  - Wrist fracture [Recovering/Resolving]
  - Influenza [Recovering/Resolving]
  - Immunodeficiency [Unknown]
  - White blood cell count increased [Unknown]
  - Forearm fracture [Recovering/Resolving]
  - Respiratory tract congestion [Unknown]
  - Oral herpes [Unknown]
  - Arthralgia [Unknown]
  - Skin discolouration [Unknown]

NARRATIVE: CASE EVENT DATE: 20240101
